FAERS Safety Report 17911161 (Version 4)
Quarter: 2020Q4

REPORT INFORMATION
  Report Type: Spontaneous
  Country: JP (occurrence: JP)
  Receive Date: 20200618
  Receipt Date: 20201221
  Transmission Date: 20210113
  Serious: Yes (Other)
  Sender: FDA-Public Use
  Company Number: JP-ASTELLAS-2020JP007947

PATIENT
  Age: 84 Year
  Sex: Male
  Weight: 48 kg

DRUGS (9)
  1. XTANDI [Suspect]
     Active Substance: ENZALUTAMIDE
     Route: 048
     Dates: start: 20191112
  2. XTANDI [Suspect]
     Active Substance: ENZALUTAMIDE
     Indication: HORMONE-REFRACTORY PROSTATE CANCER
     Route: 048
     Dates: start: 20190409, end: 20190521
  3. XTANDI [Suspect]
     Active Substance: ENZALUTAMIDE
     Route: 048
     Dates: start: 20200623
  4. CASODEX [Concomitant]
     Active Substance: BICALUTAMIDE
     Indication: PRODUCT USED FOR UNKNOWN INDICATION
     Dosage: 80 MG/DAY, UNKNOWN FREQ.
     Route: 048
  5. URIEF [Concomitant]
     Active Substance: SILODOSIN
     Indication: BENIGN PROSTATIC HYPERPLASIA
     Route: 065
     Dates: start: 201801
  6. SENNOSIDES. [Concomitant]
     Active Substance: SENNOSIDES
     Indication: CONSTIPATION
     Route: 065
     Dates: start: 201801
  7. XTANDI [Suspect]
     Active Substance: ENZALUTAMIDE
     Route: 048
     Dates: start: 20200107
  8. PROSTAL L [Concomitant]
     Active Substance: CHLORMADINONE ACETATE
     Indication: PRODUCT USED FOR UNKNOWN INDICATION
     Dosage: UNK UNK, UNKNOWN FREQ.
     Route: 065
  9. ODYNE [Concomitant]
     Active Substance: FLUTAMIDE
     Indication: PRODUCT USED FOR UNKNOWN INDICATION
     Dosage: 250 MG/DAY, UNKNOWN FREQ.
     Route: 048
     Dates: start: 20190813

REACTIONS (4)
  - Malaise [Recovered/Resolved]
  - Bedridden [Unknown]
  - Dizziness [Unknown]
  - Physical deconditioning [Unknown]

NARRATIVE: CASE EVENT DATE: 201905
